FAERS Safety Report 12306746 (Version 1)
Quarter: 2016Q2

REPORT INFORMATION
  Report Type: Spontaneous
  Country: US (occurrence: US)
  Receive Date: 20160426
  Receipt Date: 20160426
  Transmission Date: 20160815
  Serious: Yes (Other)
  Sender: FDA-Public Use
  Company Number: US-JAZZ-2014-US-015554

PATIENT
  Age: 39 Year
  Sex: Female
  Weight: 93 kg

DRUGS (12)
  1. XYREM [Suspect]
     Active Substance: SODIUM OXYBATE
     Dosage: 1.5 G, 2ND DOSE
     Route: 048
     Dates: start: 20141122
  2. XYREM [Suspect]
     Active Substance: SODIUM OXYBATE
     Indication: NARCOLEPSY
     Dosage: 3 G, BID
     Route: 048
     Dates: start: 20141110, end: 201411
  3. NUVIGIL [Concomitant]
     Active Substance: ARMODAFINIL
     Indication: PRODUCT USED FOR UNKNOWN INDICATION
     Dosage: 150 MG, QD
     Route: 048
     Dates: start: 20140927
  4. BETAINE HCL + PEPSIN [Concomitant]
     Indication: PHYTOTHERAPY
     Dosage: UNK
     Route: 048
     Dates: start: 201405
  5. DIPAN 9 (CONTAINS PANCREATIN) [Concomitant]
     Indication: PHYTOTHERAPY
     Dosage: UNK
     Route: 048
     Dates: start: 201405
  6. HUMALOG [Concomitant]
     Active Substance: INSULIN LISPRO
     Indication: TYPE 1 DIABETES MELLITUS
     Dosage: UNK
     Route: 058
  7. BUMETANIDE. [Concomitant]
     Active Substance: BUMETANIDE
     Indication: PRODUCT USED FOR UNKNOWN INDICATION
     Dosage: UNK
     Route: 048
  8. XYREM [Suspect]
     Active Substance: SODIUM OXYBATE
     Indication: CATAPLEXY
     Dosage: 3 G, 1ST DOSE
     Route: 048
     Dates: start: 20141122
  9. NUVIGIL [Concomitant]
     Active Substance: ARMODAFINIL
     Dosage: 75 MG, QD
     Route: 048
     Dates: start: 20140927
  10. KLOR-CON [Concomitant]
     Active Substance: POTASSIUM CHLORIDE
     Indication: PRODUCT USED FOR UNKNOWN INDICATION
     Dosage: UNK
     Route: 048
  11. ALAVERT ALLERGY [Concomitant]
     Active Substance: LORATADINE
     Indication: HYPERSENSITIVITY
     Dosage: UNK
     Route: 048
  12. GABAPENTIN. [Concomitant]
     Active Substance: GABAPENTIN
     Indication: NEUROPATHY PERIPHERAL
     Dosage: 300 MG, PRN
     Route: 048

REACTIONS (3)
  - Feeling abnormal [Recovered/Resolved]
  - Blood glucose decreased [Recovering/Resolving]
  - Muscle spasms [Not Recovered/Not Resolved]

NARRATIVE: CASE EVENT DATE: 20141121
